FAERS Safety Report 10244286 (Version 1)
Quarter: 2014Q2

REPORT INFORMATION
  Report Type: Spontaneous
  Country: JP (occurrence: JP)
  Receive Date: 20140618
  Receipt Date: 20140618
  Transmission Date: 20141212
  Serious: Yes (Other)
  Sender: FDA-Public Use
  Company Number: JP-ASTELLAS-2014JP008615

PATIENT
  Age: 2 Year
  Sex: Female
  Weight: 13 kg

DRUGS (8)
  1. PROGRAF [Suspect]
     Indication: PROPHYLAXIS AGAINST GRAFT VERSUS HOST DISEASE
     Route: 041
  2. CYCLOPHOSPHAMIDE [Concomitant]
     Indication: BONE MARROW CONDITIONING REGIMEN
     Route: 065
  3. METHOTREXATE [Concomitant]
     Indication: PROPHYLAXIS AGAINST GRAFT VERSUS HOST DISEASE
     Route: 065
  4. DALTEPARIN [Concomitant]
     Indication: PROPHYLAXIS
     Route: 065
  5. FRESH FROZEN PLASMA [Concomitant]
     Indication: PROPHYLAXIS
     Dosage: UNK UNK, TWICE WEEKLY
     Route: 065
  6. THROMBOMODULIN ALFA [Concomitant]
     Indication: VENOOCCLUSIVE DISEASE
     Route: 065
  7. NAFAMOSTAT MESILATE [Concomitant]
     Indication: VENOOCCLUSIVE DISEASE
     Route: 065
  8. PROTEIN C (COAGULATION INHIBITOR) [Concomitant]
     Indication: VENOOCCLUSIVE DISEASE
     Route: 065

REACTIONS (2)
  - Acute graft versus host disease in skin [Unknown]
  - Drug ineffective [Unknown]
